FAERS Safety Report 21011024 (Version 2)
Quarter: 2022Q2

REPORT INFORMATION
  Report Type: Spontaneous
  Country: US (occurrence: US)
  Receive Date: 20220627
  Receipt Date: 20220630
  Transmission Date: 20220721
  Serious: Yes (Hospitalization)
  Sender: FDA-Public Use
  Company Number: US-PFIZER INC-PV202200008945

PATIENT
  Sex: Female

DRUGS (2)
  1. LIPITOR [Suspect]
     Active Substance: ATORVASTATIN CALCIUM
     Dosage: UNK
  2. LENVIMA [Suspect]
     Active Substance: LENVATINIB
     Indication: Endometrial cancer
     Dosage: UNK
     Dates: start: 20220315

REACTIONS (8)
  - Gait disturbance [Recovered/Resolved]
  - Impaired self-care [Recovered/Resolved]
  - Electrolyte imbalance [Recovered/Resolved]
  - Renal disorder [Recovered/Resolved]
  - Liver disorder [Recovered/Resolved]
  - Pancreatic disorder [Recovered/Resolved]
  - Gallbladder disorder [Recovered/Resolved]
  - Muscle disorder [Recovered/Resolved]
